FAERS Safety Report 6675742-8 (Version None)
Quarter: 2010Q2

REPORT INFORMATION
  Report Type: 
  Country: None (occurrence: None)
  Receive Date: 20100409
  Receipt Date: 20100401
  Transmission Date: 20101027
  Serious: Yes (Hospitalization, Other)
  Sender: FDA-Public Use
  Company Number: GB-ABBOTT-09P-167-0616122-00

PATIENT
  Sex: Male

DRUGS (2)
  1. HUMIRA [Suspect]
     Indication: CROHN'S DISEASE
     Route: 058
     Dates: start: 20100201
  2. HUMIRA [Suspect]
     Route: 058
     Dates: start: 20091218

REACTIONS (3)
  - CONVULSION [None]
  - FOAMING AT MOUTH [None]
  - TREMOR [None]
